FAERS Safety Report 9925759 (Version 1)
Quarter: 2014Q1

REPORT INFORMATION
  Report Type: Spontaneous
  Country: US (occurrence: US)
  Receive Date: 20140226
  Receipt Date: 20140226
  Transmission Date: 20141002
  Serious: Yes (Other)
  Sender: FDA-Public Use
  Company Number: US-FRI-1000054539

PATIENT
  Age: 70 Year
  Sex: Male

DRUGS (10)
  1. LINZESS [Suspect]
     Indication: CONSTIPATION
     Dosage: 290 MCG
     Dates: start: 20140210, end: 20140215
  2. LISINOPRIL [Concomitant]
     Indication: HYPERTENSION
  3. ASPIRIN [Concomitant]
     Dosage: 81 MG
  4. NIACIN [Concomitant]
     Indication: BLOOD CHOLESTEROL INCREASED
  5. TOPROL XL [Concomitant]
     Indication: HYPERTENSION
  6. SYMBICORT [Concomitant]
     Indication: CHRONIC OBSTRUCTIVE PULMONARY DISEASE
  7. LIPITOR [Concomitant]
     Indication: BLOOD CHOLESTEROL INCREASED
  8. XANAX [Concomitant]
     Indication: ANXIETY
  9. METFORMIN [Concomitant]
     Indication: DIABETES MELLITUS
  10. OMEPRAZOLE [Concomitant]
     Indication: GASTROOESOPHAGEAL REFLUX DISEASE

REACTIONS (4)
  - Benign prostatic hyperplasia [Recovered/Resolved]
  - Urinary tract obstruction [Recovered/Resolved]
  - Urinary retention [Recovered/Resolved]
  - Abdominal pain lower [Recovered/Resolved]
